FAERS Safety Report 8340372-9 (Version None)
Quarter: 2012Q2

REPORT INFORMATION
  Report Type: 
  Country: None (occurrence: None)
  Receive Date: 20120507
  Receipt Date: 20120430
  Transmission Date: 20120825
  Serious: Yes (Other)
  Sender: FDA-Public Use
  Company Number: US-PFIZER INC-2012105434

PATIENT
  Sex: Female
  Weight: 66.667 kg

DRUGS (5)
  1. ZOLOFT [Concomitant]
     Indication: STRESS
     Dosage: 100 MG, DAILY
     Dates: start: 20040101
  2. ZOLOFT [Concomitant]
     Indication: DIZZINESS
  3. ACETYLSALICYLIC ACID [Concomitant]
     Indication: ARTHRITIS
     Dosage: 100 MG, UNK
  4. LYRICA [Suspect]
     Indication: FIBROMYALGIA
     Dosage: 100 MG, 1X/DAY
     Route: 048
     Dates: start: 20120428, end: 20120428
  5. ACETYLSALICYLIC ACID [Concomitant]
     Indication: ARTHRALGIA
     Dosage: 200 MG, DAILY

REACTIONS (10)
  - DIZZINESS [None]
  - SOMNOLENCE [None]
  - HEAD DISCOMFORT [None]
  - DRUG INTOLERANCE [None]
  - HALLUCINATION [None]
  - NAUSEA [None]
  - FEELING ABNORMAL [None]
  - GAIT DISTURBANCE [None]
  - ACTIVITIES OF DAILY LIVING IMPAIRED [None]
  - SPEECH DISORDER [None]
